FAERS Safety Report 20602499 (Version 2)
Quarter: 2022Q1

REPORT INFORMATION
  Report Type: Report from Study
  Country: FR (occurrence: None)
  Receive Date: 20220316
  Receipt Date: 20220322
  Transmission Date: 20220423
  Serious: Yes (Hospitalization)
  Sender: FDA-Public Use
  Company Number: FR-ROCHE-3049332

PATIENT
  Age: 76 Year
  Sex: Male
  Weight: 82 kg

DRUGS (8)
  1. TIRAGOLUMAB [Suspect]
     Active Substance: TIRAGOLUMAB
     Indication: Metastatic neoplasm
     Dosage: ON 08-FEB-2022 12:05 PM TO 12:35 PM, THE PATIENT WAS RECEIVED TIRAGOLUMAB AT 840 MG PRIOR TO AE ONSE
     Route: 042
     Dates: start: 20210406
  2. ATEZOLIZUMAB [Suspect]
     Active Substance: ATEZOLIZUMAB
     Indication: Metastatic neoplasm
     Dosage: ON 08-FEB-2022 1:05 PM TO 1:35 PM, THE PATIENT WAS RECEIVED ATEZOLIZUMAB AT 1680 MG PRIOR TO AE ONSE
     Route: 042
     Dates: start: 20210406
  3. LEVOTHYROXINE [Concomitant]
     Active Substance: LEVOTHYROXINE
     Indication: Hypothyroidism
     Route: 048
     Dates: start: 20150101
  4. IRBESARTAN [Concomitant]
     Active Substance: IRBESARTAN
     Indication: Hypertension
     Route: 048
     Dates: start: 20181219
  5. HYALURONATE SODIUM [Concomitant]
     Active Substance: HYALURONATE SODIUM
     Indication: Conjunctivitis
     Route: 048
     Dates: start: 20200101
  6. XYZAL [Concomitant]
     Active Substance: LEVOCETIRIZINE DIHYDROCHLORIDE
     Indication: Conjunctivitis
     Route: 048
     Dates: start: 20210824
  7. NAABAK [Concomitant]
     Indication: Conjunctivitis
     Dates: start: 20210824
  8. DERMOVAL (FRANCE) [Concomitant]
     Indication: Rash
     Dosage: 1 OTHER
     Route: 061
     Dates: start: 20211110

REACTIONS (1)
  - Hepatic cytolysis [Not Recovered/Not Resolved]

NARRATIVE: CASE EVENT DATE: 20220309
